FAERS Safety Report 14600136 (Version 2)
Quarter: 2018Q2

REPORT INFORMATION
  Report Type: Report from Study
  Country: BE (occurrence: BE)
  Receive Date: 20180305
  Receipt Date: 20180420
  Transmission Date: 20180711
  Serious: Yes (Other)
  Sender: FDA-Public Use
  Company Number: BE-PFIZER INC-2018086238

PATIENT
  Age: 65 Year
  Sex: Female
  Weight: 49 kg

DRUGS (4)
  1. FLUOROURACIL. [Suspect]
     Active Substance: FLUOROURACIL
     Indication: COLORECTAL CANCER METASTATIC
     Dosage: 1 UNK, EVERY 2 WEEKS
     Route: 042
     Dates: start: 20161003
  2. BEVACIZUMAB. [Suspect]
     Active Substance: BEVACIZUMAB
     Indication: COLORECTAL CANCER METASTATIC
     Dosage: 1 UNK, EVERY 2 WEEKS; DATE OF MOST RECENT DOSE OF BEVACIZUMAB (260) ON 04/SEP/2017
     Route: 042
     Dates: start: 20161003
  3. IRINOTECAN HCL [Suspect]
     Active Substance: IRINOTECAN HYDROCHLORIDE
     Indication: COLORECTAL CANCER METASTATIC
     Dosage: UNK (1, EVERY 2 WEEKS)
     Route: 042
     Dates: start: 20161003
  4. LEUCOVORIN /00566701/ [Suspect]
     Active Substance: LEUCOVORIN
     Indication: COLORECTAL CANCER METASTATIC
     Dosage: 1 UNKNOWN UNIT, CYCLIC
     Route: 042
     Dates: start: 20161003

REACTIONS (13)
  - Cholestasis [Recovering/Resolving]
  - Thrombocytopenia [Recovered/Resolved]
  - Stomatitis [Recovering/Resolving]
  - Abdominal pain [Recovering/Resolving]
  - Arthralgia [Recovering/Resolving]
  - Hypertension [Recovered/Resolved]
  - Tooth fracture [Recovered/Resolved]
  - Nasopharyngitis [Recovered/Resolved]
  - Tooth abscess [Recovered/Resolved]
  - Fatigue [Recovered/Resolved]
  - Pain [Recovered/Resolved]
  - Vomiting [Recovered/Resolved]
  - Nausea [Recovered/Resolved]

NARRATIVE: CASE EVENT DATE: 20161031
